FAERS Safety Report 8202336-5 (Version None)
Quarter: 2012Q1

REPORT INFORMATION
  Report Type: 
  Country: None (occurrence: None)
  Receive Date: 20120312
  Receipt Date: 20110413
  Transmission Date: 20120608
  Serious: No
  Sender: FDA-Public Use
  Company Number: US-ABBOTT-11P-163-0718862-OO

PATIENT
  Age: 29 Year
  Sex: Female
  Weight: 54.48 kg

DRUGS (4)
  1. DEPAKOTE [Suspect]
     Indication: AFFECTIVE DISORDER
     Route: 048
     Dates: start: 20101101
  2. TRAZODONE HCL [Concomitant]
     Indication: SLEEP DISORDER
  3. GEODON [Suspect]
     Indication: PARANOIA
     Route: 048
     Dates: start: 20101001
  4. GEODON [Suspect]
     Indication: SCHIZOPHRENIA
     Route: 048
     Dates: start: 20101101

REACTIONS (1)
  - ALOPECIA [None]
